FAERS Safety Report 17478703 (Version 2)
Quarter: 2021Q1

REPORT INFORMATION
  Report Type: Report from Study
  Country: FR (occurrence: FR)
  Receive Date: 20200228
  Receipt Date: 20210211
  Transmission Date: 20210419
  Serious: Yes (Hospitalization)
  Sender: FDA-Public Use
  Company Number: FR-CELGENEUS-FRA-20200209210

PATIENT
  Age: 69 Year
  Sex: Male

DRUGS (6)
  1. VIDAZA [Suspect]
     Active Substance: AZACITIDINE
     Dosage: 130 MILLIGRAM
     Route: 058
     Dates: start: 20200207, end: 20200211
  2. NEULASTA [Concomitant]
     Active Substance: PEGFILGRASTIM
     Indication: COLONY STIMULATING FACTOR THERAPY
     Route: 065
     Dates: start: 20191226
  3. PEGFILGRASTIM [Concomitant]
     Active Substance: PEGFILGRASTIM
     Indication: COLONY STIMULATING FACTOR THERAPY
     Route: 065
     Dates: start: 20200214
  4. NOXAFIL [Concomitant]
     Active Substance: POSACONAZOLE
     Indication: INFECTION PROPHYLAXIS
     Route: 065
  5. VIDAZA [Suspect]
     Active Substance: AZACITIDINE
     Indication: MYELODYSPLASTIC SYNDROME
     Dosage: 145 MILLIGRAM
     Route: 058
     Dates: start: 20190730, end: 20190805
  6. G?CSF [Concomitant]
     Active Substance: GRANULOCYTE COLONY-STIMULATING FACTOR NOS
     Indication: COLONY STIMULATING FACTOR THERAPY
     Route: 065
     Dates: start: 20191025

REACTIONS (1)
  - Pseudomonal sepsis [Recovered/Resolved with Sequelae]

NARRATIVE: CASE EVENT DATE: 20200221
